FAERS Safety Report 6614534-2 (Version None)
Quarter: 2010Q1

REPORT INFORMATION
  Report Type: 
  Country: None (occurrence: None)
  Receive Date: 20100304
  Receipt Date: 20100304
  Transmission Date: 20100710
  Serious: Yes (Hospitalization)
  Sender: FDA-Public Use
  Company Number: None

PATIENT
  Age: 53 Year
  Sex: Male
  Weight: 74 kg

DRUGS (1)
  1. LITHIUM [Suspect]
     Dosage: 900 MG BID PO
     Route: 048
     Dates: start: 20100104, end: 20100115

REACTIONS (18)
  - AGITATION [None]
  - ANTIPSYCHOTIC DRUG LEVEL INCREASED [None]
  - ASTHENIA [None]
  - BALANCE DISORDER [None]
  - BLOOD CALCIUM INCREASED [None]
  - BLOOD POTASSIUM DECREASED [None]
  - BLOOD SODIUM DECREASED [None]
  - CONFUSIONAL STATE [None]
  - DIARRHOEA [None]
  - DIZZINESS [None]
  - HYPERHIDROSIS [None]
  - MOOD SWINGS [None]
  - NAUSEA [None]
  - PHOTOPSIA [None]
  - POLYDIPSIA [None]
  - RHINORRHOEA [None]
  - TREMOR [None]
  - VOMITING [None]
